FAERS Safety Report 26173352 (Version 1)
Quarter: 2025Q4

REPORT INFORMATION
  Report Type: Report from Study
  Country: EU (occurrence: EU)
  Receive Date: 20251218
  Receipt Date: 20251218
  Transmission Date: 20260117
  Serious: Yes (Other)
  Sender: AUROBINDO
  Company Number: EU-EMA-DD-20251203-7482661-112314

PATIENT
  Age: 67 Year
  Sex: Female

DRUGS (2)
  1. MYCOPHENOLATE MOFETIL [Suspect]
     Active Substance: MYCOPHENOLATE MOFETIL
     Indication: Microscopic polyangiitis
     Dosage: UNK
     Route: 065
  2. CYCLOPHOSPHAMIDE [Suspect]
     Active Substance: CYCLOPHOSPHAMIDE
     Indication: Microscopic polyangiitis
     Dosage: UNK

REACTIONS (3)
  - Herpes zoster [Recovering/Resolving]
  - Varicella zoster virus infection [Recovering/Resolving]
  - Product use in unapproved indication [Unknown]
